FAERS Safety Report 12631586 (Version 2)
Quarter: 2016Q3

REPORT INFORMATION
  Report Type: Spontaneous
  Country: US (occurrence: US)
  Receive Date: 20160808
  Receipt Date: 20160808
  Transmission Date: 20161109
  Serious: No
  Sender: FDA-Public Use
  Company Number: US-BEH-2015054783

PATIENT
  Age: 53 Year
  Sex: Female
  Weight: 58 kg

DRUGS (22)
  1. SYMBICORT [Concomitant]
     Active Substance: BUDESONIDE\FORMOTEROL FUMARATE DIHYDRATE
  2. ACETAMINOPHEN. [Concomitant]
     Active Substance: ACETAMINOPHEN
  3. EPIPEN [Concomitant]
     Active Substance: EPINEPHRINE
  4. LOPRESSOR [Concomitant]
     Active Substance: METOPROLOL TARTRATE
  5. ADVAIR HFA [Concomitant]
     Active Substance: FLUTICASONE PROPIONATE\SALMETEROL XINAFOATE
  6. TOPROL XL [Concomitant]
     Active Substance: METOPROLOL SUCCINATE
  7. HIZENTRA [Suspect]
     Active Substance: HUMAN IMMUNOGLOBULIN G
     Indication: HYPOGAMMAGLOBULINAEMIA
     Route: 058
     Dates: start: 20151013
  8. IMURAN [Concomitant]
     Active Substance: AZATHIOPRINE
  9. PRAVASTATIN. [Concomitant]
     Active Substance: PRAVASTATIN
  10. DILTIAZEM. [Concomitant]
     Active Substance: DILTIAZEM
  11. MULTIVITAMIN [Concomitant]
     Active Substance: VITAMINS
  12. FLONASE [Concomitant]
     Active Substance: FLUTICASONE PROPIONATE
  13. DIPHENHYDRAMINE. [Concomitant]
     Active Substance: DIPHENHYDRAMINE
  14. LMX [Concomitant]
     Active Substance: LIDOCAINE
  15. PROVENTIL [Concomitant]
     Active Substance: ALBUTEROL
  16. NEXIUM [Concomitant]
     Active Substance: ESOMEPRAZOLE MAGNESIUM
  17. HYDROCHLOROTHIAZIDE. [Concomitant]
     Active Substance: HYDROCHLOROTHIAZIDE
  18. PLAQUENIL [Concomitant]
     Active Substance: HYDROXYCHLOROQUINE SULFATE
  19. HIZENTRA [Suspect]
     Active Substance: HUMAN IMMUNOGLOBULIN G
     Indication: SELECTIVE IGM IMMUNODEFICIENCY
     Route: 058
     Dates: start: 20151013
  20. NITROSTAT [Concomitant]
     Active Substance: NITROGLYCERIN
  21. ASPIRIN. [Concomitant]
     Active Substance: ASPIRIN
  22. PRILOSEC [Concomitant]
     Active Substance: OMEPRAZOLE MAGNESIUM

REACTIONS (1)
  - Infusion site extravasation [Unknown]

NARRATIVE: CASE EVENT DATE: 20151013
